FAERS Safety Report 10031823 (Version 1)
Quarter: 2014Q1

REPORT INFORMATION
  Report Type: Report from Study
  Country: FR (occurrence: FR)
  Receive Date: 20140324
  Receipt Date: 20140324
  Transmission Date: 20141002
  Serious: Yes (Hospitalization)
  Sender: FDA-Public Use
  Company Number: FR-ROCHE-1365195

PATIENT
  Sex: Female

DRUGS (11)
  1. RITUXIMAB [Suspect]
     Indication: RHEUMATOID ARTHRITIS
     Dosage: DAY 1
     Route: 041
     Dates: start: 20080421
  2. RITUXIMAB [Suspect]
     Dosage: DAY 15
     Route: 041
     Dates: start: 20080506
  3. RITUXIMAB [Suspect]
     Route: 041
     Dates: end: 20090604
  4. RITUXIMAB [Suspect]
     Route: 041
     Dates: start: 20100505, end: 20101114
  5. TOCILIZUMAB [Suspect]
     Indication: RHEUMATOID ARTHRITIS
     Route: 065
  6. LEFLUNOMIDE [Concomitant]
     Route: 065
     Dates: start: 20080506
  7. LEFLUNOMIDE [Concomitant]
     Route: 065
     Dates: start: 20090604
  8. LEFLUNOMIDE [Concomitant]
     Route: 065
     Dates: start: 20100505
  9. CORTANCYL [Concomitant]
     Route: 065
     Dates: start: 20080506
  10. CORTANCYL [Concomitant]
     Route: 065
     Dates: start: 20090604
  11. CORTANCYL [Concomitant]
     Route: 065
     Dates: start: 20100505

REACTIONS (5)
  - Back pain [Not Recovered/Not Resolved]
  - Sciatica [Recovered/Resolved]
  - Herpes virus infection [Recovered/Resolved]
  - Asthenia [Not Recovered/Not Resolved]
  - Skin ulcer [Not Recovered/Not Resolved]
